FAERS Safety Report 5032027-3 (Version None)
Quarter: 2006Q2

REPORT INFORMATION
  Report Type: 
  Country: None (occurrence: None)
  Receive Date: 20060616
  Receipt Date: 20060602
  Transmission Date: 20061013
  Serious: Yes (Hospitalization)
  Sender: FDA-Public Use
  Company Number: B0427011A

PATIENT
  Age: 26 Year
  Sex: Male

DRUGS (1)
  1. LITHIUM SALT (FORMULATION UNKNOWN) (LITHIUM SALT) [Suspect]
     Indication: BIPOLAR DISORDER

REACTIONS (6)
  - DIABETES MELLITUS NON-INSULIN-DEPENDENT [None]
  - DIABETIC KETOACIDOSIS [None]
  - DRUG WITHDRAWAL SYNDROME [None]
  - GLYCOSYLATED HAEMOGLOBIN INCREASED [None]
  - HYPOGLYCAEMIA [None]
  - TREMOR [None]
